FAERS Safety Report 9353059 (Version 1)
Quarter: 2013Q2

REPORT INFORMATION
  Report Type: Spontaneous
  Country: US (occurrence: None)
  Receive Date: 20130617
  Receipt Date: 20130617
  Transmission Date: 20140414
  Serious: Yes (Life-Threatening, Hospitalization, Other)
  Sender: FDA-Public Use
  Company Number: None

PATIENT
  Age: 66 Year
  Sex: Female
  Weight: 61.24 kg

DRUGS (2)
  1. DOXEPIN [Suspect]
     Indication: DEPRESSION
     Route: 048
     Dates: start: 20130417, end: 20130428
  2. ZOLPIDEM TARTRATE [Suspect]
     Indication: INSOMNIA
     Route: 048
     Dates: start: 20130201, end: 20130430

REACTIONS (11)
  - Confusional state [None]
  - Amnesia [None]
  - Agitation [None]
  - Anxiety [None]
  - Depression [None]
  - Aggression [None]
  - Heart rate increased [None]
  - Heart rate irregular [None]
  - Dizziness [None]
  - Asthenia [None]
  - Feeling abnormal [None]
